FAERS Safety Report 8590128-7 (Version None)
Quarter: 2012Q3

REPORT INFORMATION
  Report Type: 
  Country: None (occurrence: None)
  Receive Date: 20120813
  Receipt Date: 20120807
  Transmission Date: 20120928
  Serious: Yes (Hospitalization, Other)
  Sender: FDA-Public Use
  Company Number: GB-PERRIGO-12GB006761

PATIENT
  Age: 49 Year
  Sex: Male
  Weight: 63 kg

DRUGS (11)
  1. DARBEPOETIN ALFA [Concomitant]
     Indication: ANAEMIA
     Dosage: 80 MICORGRAMS WEEKLY
     Route: 065
     Dates: start: 20120329, end: 20120509
  2. INCIVO [Suspect]
     Indication: HEPATITIS C
     Dosage: 750 MG, TID
     Route: 048
     Dates: start: 20120226, end: 20120509
  3. ACETAMINOPHEN [Concomitant]
     Indication: PAIN
     Dosage: 1 G, QD
     Route: 065
  4. MIRTAZAPINE [Concomitant]
     Indication: DEPRESSION
     Dosage: 15 MG, QD
     Route: 065
  5. RIBAVIRIN [Concomitant]
     Indication: HEPATITIS C
     Dosage: 400 MG, TID
     Route: 065
     Dates: start: 20120115, end: 20120509
  6. VIRAFERONPEG [Concomitant]
     Indication: HEPATITIS C
     Dosage: 80 MICROGRAMS PER WEEK
     Route: 065
     Dates: start: 20120115, end: 20120509
  7. TIOTROPIUM [Concomitant]
     Indication: CHRONIC OBSTRUCTIVE PULMONARY DISEASE
     Dosage: 18 MICROGRAMS QD
     Route: 065
  8. METHADONE HYDROCHLORIDE [Concomitant]
     Indication: DEPENDENCE
     Dosage: 90 ML, QD
     Route: 065
  9. ALBUTEROL SULATE [Concomitant]
     Indication: CHRONIC OBSTRUCTIVE PULMONARY DISEASE
     Route: 065
  10. FLUTICASONE PROPIONATE/SALMETEROL [Concomitant]
     Indication: CHRONIC OBSTRUCTIVE PULMONARY DISEASE
     Route: 055
  11. IBUPROFEN [Suspect]
     Indication: PAIN
     Dosage: 400 MG, TID
     Route: 048
     Dates: end: 20120508

REACTIONS (7)
  - DYSURIA [None]
  - LOWER RESPIRATORY TRACT INFECTION [None]
  - URINARY TRACT INFECTION [None]
  - RENAL IMPAIRMENT [None]
  - ANAEMIA [None]
  - POLLAKIURIA [None]
  - FLANK PAIN [None]
